FAERS Safety Report 14488461 (Version 9)
Quarter: 2019Q1

REPORT INFORMATION
  Report Type: Spontaneous
  Country: PL (occurrence: PL)
  Receive Date: 20180205
  Receipt Date: 20190329
  Transmission Date: 20190417
  Serious: Yes (Other)
  Sender: FDA-Public Use
  Company Number: PL-009507513-1801POL010745

PATIENT
  Age: 61 Year
  Sex: Male

DRUGS (4)
  1. KETOCONAZOLE. [Concomitant]
     Active Substance: KETOCONAZOLE
     Dosage: 300 TO 600 MG PER DAY
     Dates: start: 2011
  2. KETOCONAZOLE. [Concomitant]
     Active Substance: KETOCONAZOLE
     Dosage: 300 TO 600 MG PER DAY, QD
     Dates: start: 2011
  3. TEMOZOLOMIDE. [Suspect]
     Active Substance: TEMOZOLOMIDE
     Indication: PITUITARY TUMOUR BENIGN
     Dosage: (150-200 MG/M2) ONCE DAILY IN THE MORNING, FOR 5 CONSECUTIVE DAYS (28-DAY CYCLE)
     Route: 048
     Dates: start: 201504, end: 201512
  4. TEMOZOLOMIDE. [Suspect]
     Active Substance: TEMOZOLOMIDE
     Dosage: 320 MG, QD (FOR FIVE CONSECUTIVE DAYS (28-DAY CYCLE))
     Dates: start: 2015, end: 201601

REACTIONS (4)
  - Deafness [Unknown]
  - Nausea [Unknown]
  - Therapy partial responder [Unknown]
  - Off label use [Unknown]

NARRATIVE: CASE EVENT DATE: 2015
